FAERS Safety Report 8830925 (Version 2)
Quarter: 2012Q4

REPORT INFORMATION
  Report Type: 
  Country: US (occurrence: US)
  Receive Date: 20121009
  Receipt Date: 20121016
  Transmission Date: 20130627
  Serious: No
  Sender: FDA-Public Use
  Company Number: US-009507513-1208USA005825

PATIENT
  Age: 21 None
  Sex: Female
  Weight: 89.8 kg

DRUGS (1)
  1. IMPLANON [Suspect]
     Indication: CONTRACEPTION
     Dosage: unk
     Route: 059
     Dates: start: 20110908

REACTIONS (3)
  - Contusion [Unknown]
  - Device dislocation [Unknown]
  - Application site scar [Unknown]
